FAERS Safety Report 10057462 (Version 3)
Quarter: 2014Q2

REPORT INFORMATION
  Report Type: Spontaneous
  Country: DE (occurrence: DE)
  Receive Date: 20140403
  Receipt Date: 20140529
  Transmission Date: 20141212
  Serious: Yes (Other)
  Sender: FDA-Public Use
  Company Number: DE-GILEAD-2014-0098660

PATIENT
  Age: 72 Year
  Sex: Female
  Weight: 75 kg

DRUGS (4)
  1. RANOLAZINE [Suspect]
     Indication: HYPERTENSION
     Dosage: 375 MG, BID
     Route: 048
     Dates: start: 20131106, end: 20140317
  2. RANOLAZINE [Suspect]
     Indication: ANGINA PECTORIS
  3. RANOLAZINE [Suspect]
     Indication: OFF LABEL USE
  4. BISO LICH [Concomitant]
     Indication: HYPERTENSION
     Dosage: 2.5 MG, QD
     Route: 048

REACTIONS (4)
  - Visual impairment [Not Recovered/Not Resolved]
  - Dizziness [Recovered/Resolved]
  - Hallucination, visual [Recovered/Resolved]
  - Off label use [Recovered/Resolved]
